FAERS Safety Report 10985727 (Version 1)
Quarter: 2015Q2

REPORT INFORMATION
  Report Type: Spontaneous
  Country: US (occurrence: US)
  Receive Date: 20150404
  Receipt Date: 20150404
  Transmission Date: 20150821
  Serious: No
  Sender: FDA-Public Use
  Company Number: US-SA-2014SA052423

PATIENT
  Age: 75 Year
  Sex: Female
  Weight: 68.04 kg

DRUGS (7)
  1. NADOLOL. [Concomitant]
     Active Substance: NADOLOL
     Dosage: TAKEN FROM SEVERAL YEARS
     Route: 065
  2. ALLEGRA-D [Suspect]
     Active Substance: FEXOFENADINE\PSEUDOEPHEDRINE
     Indication: SINUS DISORDER
     Dosage: TAKEN FROM: LAST WEEK
     Route: 048
  3. DIOVAN [Concomitant]
     Active Substance: VALSARTAN
     Dosage: TAKEN FROM SEVERAL YEARS
     Route: 065
  4. ALLEGRA-D [Suspect]
     Active Substance: FEXOFENADINE\PSEUDOEPHEDRINE
     Indication: SINUS DISORDER
     Route: 048
  5. SIMVASTATIN. [Concomitant]
     Active Substance: SIMVASTATIN
     Dosage: TAKEN FROM SEVERAL YEARS
     Route: 065
  6. ALLEGRA-D [Suspect]
     Active Substance: FEXOFENADINE\PSEUDOEPHEDRINE
     Indication: TOOTHACHE
     Route: 048
  7. ALLEGRA-D [Suspect]
     Active Substance: FEXOFENADINE\PSEUDOEPHEDRINE
     Indication: TOOTHACHE
     Dosage: TAKEN FROM: LAST WEEK
     Route: 048

REACTIONS (4)
  - Sinus congestion [Recovered/Resolved with Sequelae]
  - Toothache [Recovered/Resolved]
  - Poor quality sleep [Unknown]
  - Underdose [Unknown]

NARRATIVE: CASE EVENT DATE: 201403
